FAERS Safety Report 9137919 (Version 1)
Quarter: 2013Q1

REPORT INFORMATION
  Report Type: Spontaneous
  Country: US (occurrence: US)
  Receive Date: 20130304
  Receipt Date: 20130304
  Transmission Date: 20140127
  Serious: No
  Sender: FDA-Public Use
  Company Number: US-ABBOTT-12P-163-0951810-00

PATIENT
  Age: 63 None
  Sex: Male
  Weight: 78.54 kg

DRUGS (4)
  1. ANDROGEL PUMP [Suspect]
     Indication: OSTEOPOROSIS
     Dosage: 4 PUMPS ACTUATIONS PER DAY
     Route: 061
  2. ANDROGEL PUMP [Suspect]
     Route: 061
  3. UNKNOWN PAIN MEDICATION [Concomitant]
     Indication: ORTHOPAEDIC PROCEDURE
  4. FORTEO [Concomitant]
     Indication: PRODUCT USED FOR UNKNOWN INDICATION

REACTIONS (4)
  - Eye haemorrhage [Not Recovered/Not Resolved]
  - Hypertension [Not Recovered/Not Resolved]
  - Dizziness [Not Recovered/Not Resolved]
  - Off label use [Unknown]
